FAERS Safety Report 10204814 (Version 1)
Quarter: 2014Q2

REPORT INFORMATION
  Report Type: Spontaneous
  Country: DE (occurrence: DE)
  Receive Date: 20140529
  Receipt Date: 20140529
  Transmission Date: 20141212
  Serious: Yes (Hospitalization)
  Sender: FDA-Public Use
  Company Number: DE-009507513-1405DEU014808

PATIENT
  Age: 61 Year
  Sex: Male

DRUGS (18)
  1. MIRTAZAPINE [Suspect]
     Dosage: 15 MG, QD
     Route: 048
     Dates: start: 20120710, end: 20120713
  2. MIRTAZAPINE [Suspect]
     Dosage: 15 MG, QD
     Route: 048
     Dates: start: 20120703, end: 20120704
  3. MIRTAZAPINE [Suspect]
     Dosage: 7.5 MG, QD
     Route: 048
     Dates: start: 20120705, end: 20120709
  4. MIRTAZAPINE [Suspect]
     Dosage: 15 MG, QD
     Route: 048
     Dates: start: 20120912, end: 20120918
  5. SEROQUEL [Suspect]
     Dosage: 200 MG, QD
     Route: 048
     Dates: start: 20120723, end: 20120905
  6. SEROQUEL [Suspect]
     Dosage: 50 MG, QD
     Route: 048
     Dates: start: 20120717
  7. SEROQUEL [Suspect]
     Dosage: 100 MG, QD
     Route: 048
     Dates: start: 20120718, end: 20120722
  8. SEROQUEL [Suspect]
     Dosage: 300 MG, QD
     Route: 048
     Dates: start: 20120906, end: 20120921
  9. SEROQUEL [Suspect]
     Dosage: 150 MG, QD
     Route: 048
     Dates: start: 20120922
  10. SEROQUEL [Suspect]
     Dosage: 50 MG, QD
     Route: 048
     Dates: start: 20120923
  11. JATROSOM N [Concomitant]
     Dosage: 60 MG, QD, SINCE YEARS
     Route: 048
     Dates: start: 20120629
  12. JATROSOM N [Concomitant]
     Dosage: 40 MG, QD
     Route: 048
     Dates: start: 20120630, end: 20120709
  13. JATROSOM N [Concomitant]
     Dosage: 20 MG, QD
     Route: 048
     Dates: start: 20120710, end: 20120716
  14. JATROSOM N [Concomitant]
     Dosage: 10 MG, QD
     Route: 048
     Dates: start: 20120717, end: 20120723
  15. DOMINAL [Concomitant]
     Dosage: 80 MG, QD, SINCE YEARS
     Route: 048
  16. PANTOZOL [Concomitant]
     Dosage: 20 MG, QD, SINCE YEARS
     Route: 048
     Dates: start: 20120818
  17. PANTOZOL [Concomitant]
     Dosage: 40 MG, QD
     Route: 048
     Dates: start: 20120819
  18. SPIRIVA [Concomitant]
     Dosage: 36 MICROGRAM, QD, SINCE YEARS

REACTIONS (1)
  - Restless legs syndrome [Recovered/Resolved]
